FAERS Safety Report 5693578-1 (Version None)
Quarter: 2008Q2

REPORT INFORMATION
  Report Type: 
  Country: None (occurrence: None)
  Receive Date: 20080401
  Receipt Date: 20080401
  Transmission Date: 20081010
  Serious: Yes (Hospitalization)
  Sender: FDA-Public Use
  Company Number: None

PATIENT
  Age: 74 Year
  Sex: Male
  Weight: 102.5 kg

DRUGS (1)
  1. LITHIUM CARBONATE [Suspect]
     Indication: BIPOLAR DISORDER
     Dosage: 900MG  BID  PO
     Route: 048
     Dates: start: 20071105

REACTIONS (9)
  - ASTHENIA [None]
  - CONFUSIONAL STATE [None]
  - DECREASED APPETITE [None]
  - FATIGUE [None]
  - INFREQUENT BOWEL MOVEMENTS [None]
  - MEMORY IMPAIRMENT [None]
  - NAUSEA [None]
  - STAPHYLOCOCCAL INFECTION [None]
  - THERAPEUTIC AGENT TOXICITY [None]
